FAERS Safety Report 18866029 (Version 4)
Quarter: 2021Q3

REPORT INFORMATION
  Report Type: Spontaneous
  Country: US (occurrence: US)
  Receive Date: 20210208
  Receipt Date: 20210927
  Transmission Date: 20211014
  Serious: No
  Sender: FDA-Public Use
  Company Number: US-PFIZER INC-2021120829

PATIENT
  Age: 69 Year
  Sex: Female

DRUGS (3)
  1. MOBIC [Concomitant]
     Active Substance: MELOXICAM
     Indication: PAIN
     Dosage: 15 MG, 1X/DAY
  2. LIPITOR [Concomitant]
     Active Substance: ATORVASTATIN CALCIUM
     Indication: BLOOD CHOLESTEROL ABNORMAL
     Dosage: UNK
  3. XELJANZ XR [Suspect]
     Active Substance: TOFACITINIB CITRATE
     Indication: RHEUMATOID ARTHRITIS
     Dosage: 11 MG, DAILY
     Route: 048
     Dates: start: 20210112

REACTIONS (6)
  - Depression [Unknown]
  - Oral herpes [Recovered/Resolved]
  - Epistaxis [Unknown]
  - Dermatitis acneiform [Unknown]
  - Stress [Unknown]
  - Injury [Unknown]

NARRATIVE: CASE EVENT DATE: 2021
